FAERS Safety Report 11563227 (Version 2)
Quarter: 2015Q4

REPORT INFORMATION
  Report Type: Report from Study
  Country: US (occurrence: US)
  Receive Date: 20150924
  Receipt Date: 20151204
  Transmission Date: 20160304
  Serious: Yes (Other)
  Sender: FDA-Public Use
  Company Number: US-AEGERION PHARMACEUTICALS-AEGR000924

PATIENT

DRUGS (1)
  1. JUXTAPID [Suspect]
     Active Substance: LOMITAPIDE MESYLATE
     Indication: TYPE IIA HYPERLIPIDAEMIA
     Dosage: 5 MG, QD
     Route: 048
     Dates: start: 20141107

REACTIONS (11)
  - Liver function test abnormal [Unknown]
  - Fall [Unknown]
  - Foot fracture [Unknown]
  - Mobility decreased [Unknown]
  - Incision site pain [Unknown]
  - Diarrhoea [Unknown]
  - Influenza [Not Recovered/Not Resolved]
  - Ligament rupture [Unknown]
  - Neurostimulator implantation [Unknown]
  - Vomiting [Unknown]
  - Drug dose omission [Unknown]

NARRATIVE: CASE EVENT DATE: 20141110
